FAERS Safety Report 23305730 (Version 1)
Quarter: 2023Q4

REPORT INFORMATION
  Report Type: Report from Study
  Country: CA (occurrence: CA)
  Receive Date: 20231218
  Receipt Date: 20231218
  Transmission Date: 20240110
  Serious: Yes (Other)
  Sender: FDA-Public Use
  Company Number: CA-ABBVIE-5543504

PATIENT
  Sex: Female

DRUGS (2)
  1. RINVOQ [Suspect]
     Active Substance: UPADACITINIB
     Indication: Dermatitis atopic
     Dosage: STOP DATE 2023
     Route: 048
     Dates: start: 20230606
  2. PREDNISONE [Concomitant]
     Active Substance: PREDNISONE
     Indication: Product used for unknown indication
     Dosage: TAKING PREDNISONE FOR FIVE DAYS
     Dates: start: 2023

REACTIONS (6)
  - Ovarian cyst ruptured [Unknown]
  - Lymphadenopathy [Unknown]
  - Axillary mass [Unknown]
  - Abscess [Unknown]
  - Pruritus [Unknown]
  - Rash [Unknown]

NARRATIVE: CASE EVENT DATE: 20230101
